FAERS Safety Report 8857560 (Version 2)
Quarter: 2012Q4

REPORT INFORMATION
  Report Type: 
  Country: US (occurrence: US)
  Receive Date: 20121024
  Receipt Date: 20121112
  Transmission Date: 20130627
  Serious: Yes (Other)
  Sender: FDA-Public Use
  Company Number: US-ASTRAZENECA-2012SE78323

PATIENT
  Age: 77 Year
  Sex: Female

DRUGS (2)
  1. CRESTOR [Suspect]
     Route: 048
  2. LYRICA [Concomitant]

REACTIONS (8)
  - Myocardial infarction [Unknown]
  - Cardiac failure [Unknown]
  - Pain [Unknown]
  - Cardiac disorder [Unknown]
  - Carpal tunnel syndrome [Unknown]
  - Nerve injury [Unknown]
  - Hypertension [Unknown]
  - Hypoaesthesia [Unknown]
